FAERS Safety Report 16183682 (Version 1)
Quarter: 2019Q2

REPORT INFORMATION
  Report Type: Spontaneous
  Country: US (occurrence: US)
  Receive Date: 20190308
  Receipt Date: 20190308
  Transmission Date: 20190711
  Serious: Yes (Other)
  Sender: FDA-Public Use
  Company Number: None

PATIENT
  Age: 73 Year
  Sex: Female
  Weight: 90.72 kg

DRUGS (12)
  1. BENZTROPINE MESYLATE. [Concomitant]
     Active Substance: BENZTROPINE MESYLATE
  2. ABILIFY [Concomitant]
     Active Substance: ARIPIPRAZOLE
  3. QUETIAPINE. [Concomitant]
     Active Substance: QUETIAPINE
  4. METAMUCIL [Concomitant]
     Active Substance: PLANTAGO SEED
  5. CANDESARTAN CILEXETIL. [Concomitant]
     Active Substance: CANDESARTAN CILEXETIL
  6. LOW DOSE ASPIRIN [Concomitant]
     Active Substance: ASPIRIN
  7. TRIFLUOPERAZINE HCL [Concomitant]
  8. VITAMIN D NOS [Concomitant]
     Active Substance: VITAMIN D NOS
  9. RISPERIDONE. [Concomitant]
     Active Substance: RISPERIDONE
  10. IRON [Concomitant]
     Active Substance: IRON
  11. VALSARTAN-HYDROCHLORO 320-12.5 TABS [Suspect]
     Active Substance: HYDROCHLOROTHIAZIDE\VALSARTAN
     Indication: HYPERTENSION
     Dosage: ?          QUANTITY:1 DF DOSAGE FORM;?
     Route: 048
     Dates: start: 20130504, end: 20180303
  12. CALCIUM [Concomitant]
     Active Substance: CALCIUM

REACTIONS (8)
  - Abdominal discomfort [None]
  - Tremor [None]
  - Fatigue [None]
  - Dyspnoea [None]
  - Malaise [None]
  - Musculoskeletal stiffness [None]
  - Nausea [None]
  - Dizziness [None]

NARRATIVE: CASE EVENT DATE: 20180101
